FAERS Safety Report 8447284-0 (Version None)
Quarter: 2012Q2

REPORT INFORMATION
  Report Type: 
  Country: None (occurrence: None)
  Receive Date: 20120619
  Receipt Date: 20120612
  Transmission Date: 20120825
  Serious: Yes (Other)
  Sender: FDA-Public Use
  Company Number: PHHY2011JP60867

PATIENT
  Sex: Female

DRUGS (6)
  1. DIOVAN [Concomitant]
     Dosage: 40 MG, UNK
     Route: 048
  2. CELESTAMINE TAB [Concomitant]
     Dosage: 2 DF,
     Route: 048
     Dates: start: 20110203
  3. DIOVAN [Concomitant]
     Indication: HYPERTENSION
     Dosage: 80 MG, UNK
     Route: 048
     Dates: start: 20110121, end: 20110414
  4. LENDORMIN [Concomitant]
     Indication: INSOMNIA
     Dosage: 0.25 MG, UNK
     Route: 048
     Dates: start: 20110121
  5. TASIGNA [Suspect]
     Indication: CHRONIC MYELOID LEUKAEMIA
     Dosage: 800 MG, DAILY
     Route: 048
     Dates: start: 20110121
  6. CONIEL [Concomitant]
     Indication: HYPERURICAEMIA
     Dosage: 2 MG, DAILY
     Route: 048
     Dates: start: 20110620

REACTIONS (1)
  - GAMMA-GLUTAMYLTRANSFERASE INCREASED [None]
